FAERS Safety Report 13973108 (Version 2)
Quarter: 2017Q4

REPORT INFORMATION
  Report Type: Spontaneous
  Country: FR (occurrence: FR)
  Receive Date: 20170915
  Receipt Date: 20171123
  Transmission Date: 20180321
  Serious: Yes (Other)
  Sender: FDA-Public Use
  Company Number: FR-009507513-1709FRA006735

PATIENT
  Age: 53 Year
  Sex: Male
  Weight: 67 kg

DRUGS (1)
  1. ZEPATIER [Suspect]
     Active Substance: ELBASVIR\GRAZOPREVIR
     Indication: HEPATITIS C
     Dosage: 1 TABLET, QD, DURING 12 WEEKS
     Route: 048
     Dates: start: 20170515

REACTIONS (4)
  - Loose tooth [Unknown]
  - Tooth loss [Unknown]
  - Tooth infection [Not Recovered/Not Resolved]
  - Tooth abscess [Unknown]

NARRATIVE: CASE EVENT DATE: 2017
